FAERS Safety Report 4539571-3 (Version None)
Quarter: 2004Q4

REPORT INFORMATION
  Report Type: 
  Country: None (occurrence: None)
  Receive Date: 20041222
  Receipt Date: 20041214
  Transmission Date: 20050328
  Serious: Yes (Other)
  Sender: FDA-Public Use
  Company Number: 2004-12-0637

PATIENT
  Age: 18 Year
  Sex: Female

DRUGS (1)
  1. AERIUS (DESLORATADINE) 'LIKE CLARINEX' [Suspect]
     Dosage: ORAL
     Route: 048

REACTIONS (1)
  - HEPATITIS [None]
